FAERS Safety Report 8925916 (Version 2)
Quarter: 2013Q1

REPORT INFORMATION
  Report Type: Report from Study
  Country: FR (occurrence: FR)
  Receive Date: 20121126
  Receipt Date: 20130211
  Transmission Date: 20140127
  Serious: Yes (Death, Hospitalization, Other)
  Sender: FDA-Public Use
  Company Number: FR-ROCHE-1022121

PATIENT
  Age: 59 Year
  Sex: 0

DRUGS (6)
  1. RITUXIMAB [Suspect]
     Indication: MALIGNANT LYMPHOID NEOPLASM
     Dosage: LAST DOSE PRIOR TO SAE 2 DEC 2011
     Route: 042
     Dates: start: 20110830
  2. METHOTREXATE [Suspect]
     Indication: MALIGNANT LYMPHOID NEOPLASM
     Route: 042
     Dates: start: 20110830
  3. ETOPOSIDE [Suspect]
     Indication: MALIGNANT LYMPHOID NEOPLASM
     Dosage: LAST DOSE 1 OCT 2011
     Route: 042
     Dates: start: 20110831
  4. PREDNISOLONE [Suspect]
     Indication: MALIGNANT LYMPHOID NEOPLASM
     Route: 048
     Dates: start: 20110830, end: 20111204
  5. CARMUSTINE [Suspect]
     Indication: PRODUCT USED FOR UNKNOWN INDICATION
     Route: 042
     Dates: start: 20110901, end: 20111003
  6. CYTARABINE [Suspect]
     Indication: PRODUCT USED FOR UNKNOWN INDICATION
     Route: 042
     Dates: start: 20111202, end: 20111203

REACTIONS (2)
  - Death [Fatal]
  - Endocarditis [Unknown]
